FAERS Safety Report 12966974 (Version 1)
Quarter: 2016Q4

REPORT INFORMATION
  Report Type: Spontaneous
  Country: US (occurrence: US)
  Receive Date: 20161121
  Receipt Date: 20161121
  Transmission Date: 20170207
  Serious: Yes (Other)
  Sender: FDA-Public Use
  Company Number: None

PATIENT
  Age: 83 Year
  Sex: Male
  Weight: 81 kg

DRUGS (1)
  1. EYLEA [Suspect]
     Active Substance: AFLIBERCEPT
     Indication: RETINAL HAEMORRHAGE
     Dosage: ?          OTHER FREQUENCY:ONCE;OTHER ROUTE:INTRAVITRAL?
     Dates: start: 20161114, end: 20161114

REACTIONS (2)
  - Eye infection [None]
  - Streptococcal infection [None]

NARRATIVE: CASE EVENT DATE: 20161116
